FAERS Safety Report 5201973-X (Version None)
Quarter: 2007Q1

REPORT INFORMATION
  Report Type: 
  Country: None (occurrence: None)
  Receive Date: 20070109
  Receipt Date: 20070102
  Transmission Date: 20070707
  Serious: Yes (Other)
  Sender: FDA-Public Use
  Company Number: GB-JNJFOC-20070100334

PATIENT
  Sex: Female
  Weight: 90 kg

DRUGS (11)
  1. REMICADE [Suspect]
     Indication: RHEUMATOID ARTHRITIS
     Route: 042
  2. METHOTREXATE [Concomitant]
     Route: 065
  3. ASPIRIN [Concomitant]
     Route: 065
  4. ATENOLOL [Concomitant]
     Route: 065
  5. BENDROFLUAZIDE [Concomitant]
     Route: 065
  6. FOLIC ACID [Concomitant]
     Route: 065
  7. LISINOPRIL [Concomitant]
     Route: 065
  8. MOXONIDINE [Concomitant]
     Route: 065
  9. PIRITON [Concomitant]
     Route: 065
  10. RANITIDINE [Concomitant]
     Route: 065
  11. SURGAM [Concomitant]
     Route: 065

REACTIONS (1)
  - PERITONEAL CARCINOMA [None]
